FAERS Safety Report 16078276 (Version 1)
Quarter: 2019Q2

REPORT INFORMATION
  Report Type: Spontaneous
  Country: US (occurrence: US)
  Receive Date: 20190315
  Receipt Date: 20190315
  Transmission Date: 20190711
  Serious: No
  Sender: FDA-Public Use
  Company Number: None

PATIENT
  Age: 67 Year
  Sex: Female
  Weight: 68.6 kg

DRUGS (2)
  1. ZERBAXA [Suspect]
     Active Substance: CEFTOLOZANE SULFATE\TAZOBACTAM SODIUM
     Indication: ESCHERICHIA URINARY TRACT INFECTION
     Route: 042
     Dates: start: 20190104, end: 20190111
  2. ZERBAXA [Suspect]
     Active Substance: CEFTOLOZANE SULFATE\TAZOBACTAM SODIUM
     Indication: ESCHERICHIA URINARY TRACT INFECTION
     Route: 042
     Dates: start: 20190103, end: 20190104

REACTIONS (2)
  - Acute kidney injury [None]
  - Hypokalaemia [None]

NARRATIVE: CASE EVENT DATE: 20190107
